FAERS Safety Report 4867697-3 (Version None)
Quarter: 2005Q4

REPORT INFORMATION
  Report Type: 
  Country: None (occurrence: None)
  Receive Date: 20051222
  Receipt Date: 19981228
  Transmission Date: 20060501
  Serious: Yes (Death, Other)
  Sender: FDA-Public Use
  Company Number: 8-98285-001Z

PATIENT
  Age: 24 Year
  Sex: Female

DRUGS (3)
  1. MYLOTARG [Suspect]
     Indication: ACUTE MYELOID LEUKAEMIA
     Dosage: 9 MG/SQ.M, INTRAVENOUS
     Route: 042
     Dates: start: 19980106, end: 19981006
  2. TYLENOL (ACETAMINOPHEN) (TYLENOL (ACETAMINOPHEN)) [Concomitant]
  3. BENADRYL (DIPHENHYDRAMINE) (BENADRYL (DIPHENHYDRAMINE)) [Concomitant]

REACTIONS (9)
  - ASCITES [None]
  - ASPARTATE AMINOTRANSFERASE INCREASED [None]
  - CHILLS [None]
  - HAEMOGLOBIN DECREASED [None]
  - HEART RATE DECREASED [None]
  - HEART RATE INCREASED [None]
  - HYPOXIA [None]
  - PLATELET COUNT DECREASED [None]
  - SEPSIS [None]
